FAERS Safety Report 10154027 (Version 1)
Quarter: 2014Q2

REPORT INFORMATION
  Report Type: Spontaneous
  Country: CA (occurrence: CA)
  Receive Date: 20140506
  Receipt Date: 20140506
  Transmission Date: 20141212
  Serious: Yes (Hospitalization)
  Sender: FDA-Public Use
  Company Number: CA-ROCHE-1389121

PATIENT
  Sex: Female

DRUGS (10)
  1. XELODA [Suspect]
     Indication: PRODUCT USED FOR UNKNOWN INDICATION
     Route: 065
  2. TYKERB [Suspect]
     Indication: PRODUCT USED FOR UNKNOWN INDICATION
     Route: 048
  3. CORTEF [Concomitant]
  4. IMODIUM [Concomitant]
  5. OXAZEPAM [Concomitant]
  6. PANTOPRAZOLE [Concomitant]
  7. SUPEUDOL [Concomitant]
  8. THYROXINE [Concomitant]
  9. TINZAPARIN [Concomitant]
     Route: 065
  10. TYLENOL [Concomitant]

REACTIONS (16)
  - Asthenia [Not Recovered/Not Resolved]
  - Breast cancer [Not Recovered/Not Resolved]
  - Chapped lips [Not Recovered/Not Resolved]
  - Constipation [Not Recovered/Not Resolved]
  - Diarrhoea [Not Recovered/Not Resolved]
  - Dyspnoea [Not Recovered/Not Resolved]
  - Fatigue [Not Recovered/Not Resolved]
  - Lip dry [Not Recovered/Not Resolved]
  - Lip pain [Not Recovered/Not Resolved]
  - Malignant neoplasm progression [Not Recovered/Not Resolved]
  - Nausea [Not Recovered/Not Resolved]
  - Pain in extremity [Not Recovered/Not Resolved]
  - Palliative care [Not Recovered/Not Resolved]
  - Phlebitis [Not Recovered/Not Resolved]
  - Skin fissures [Not Recovered/Not Resolved]
  - Vomiting [Not Recovered/Not Resolved]
